FAERS Safety Report 8575946-3 (Version None)
Quarter: 2012Q3

REPORT INFORMATION
  Report Type: 
  Country: None (occurrence: None)
  Receive Date: 20120807
  Receipt Date: 20120727
  Transmission Date: 20120928
  Serious: Yes (Hospitalization)
  Sender: FDA-Public Use
  Company Number: US-BAYER-2012-076763

PATIENT
  Age: 20 Year
  Sex: Female

DRUGS (3)
  1. METFORMIN HCL [Concomitant]
     Dosage: 500 MG, TAKE 1 EVERY EVENING FOR 7 DAYS, THEN TAKE 2 EVERY EVENING THEREAFTER
     Route: 048
  2. METFORMIN HCL [Concomitant]
     Dosage: 500 MG, BID
  3. YASMIN [Suspect]
     Indication: MENOMETRORRHAGIA
     Dosage: UNK
     Dates: start: 20040824

REACTIONS (1)
  - PULMONARY EMBOLISM [None]
